FAERS Safety Report 5702672-8 (Version None)
Quarter: 2008Q2

REPORT INFORMATION
  Report Type: 
  Country: None (occurrence: None)
  Receive Date: 20080411
  Receipt Date: 20080404
  Transmission Date: 20081010
  Serious: Yes (Death)
  Sender: FDA-Public Use
  Company Number: JP-BRISTOL-MYERS SQUIBB COMPANY-14082515

PATIENT
  Age: 66 Year
  Sex: Female

DRUGS (4)
  1. CARBIDOPA + LEVODOPA [Suspect]
     Indication: PARKINSON'S DISEASE
     Dosage: 28JAN08-01FEB08,300MG/D,ORAL;INCREASED TO 324MG/D,02-05FEB08,DISCONTINUED.
     Route: 048
     Dates: start: 20080202, end: 20080205
  2. TANNALBIN [Concomitant]
     Dates: start: 20080201, end: 20080206
  3. OMEPRAL [Concomitant]
     Dates: start: 20080203
  4. MADOPAR [Concomitant]
     Dates: end: 20080127

REACTIONS (5)
  - INCORRECT ROUTE OF DRUG ADMINISTRATION [None]
  - PEPTIC ULCER PERFORATION [None]
  - PERITONITIS [None]
  - PNEUMONIA [None]
  - WRONG TECHNIQUE IN DRUG USAGE PROCESS [None]
